FAERS Safety Report 7217227-6 (Version None)
Quarter: 2011Q1

REPORT INFORMATION
  Report Type: 
  Country: None (occurrence: None)
  Receive Date: 20110110
  Receipt Date: 20110104
  Transmission Date: 20110831
  Serious: Yes (Hospitalization)
  Sender: FDA-Public Use
  Company Number: JP-JNJFOC-20101208041

PATIENT
  Sex: Female

DRUGS (8)
  1. FLORID [Suspect]
     Route: 048
  2. RIBOFLAVIN TAB [Concomitant]
     Route: 048
  3. TRANSAMIN [Concomitant]
     Route: 065
  4. FLORID [Suspect]
     Route: 048
  5. FLORID [Suspect]
     Route: 048
  6. WARFARIN POTASSIUM [Interacting]
     Indication: PRODUCT USED FOR UNKNOWN INDICATION
     Route: 048
  7. FLORID [Suspect]
     Indication: ORAL CANDIDIASIS
     Route: 048
  8. FLORID [Suspect]
     Route: 048

REACTIONS (3)
  - INTRA-ABDOMINAL HAEMORRHAGE [None]
  - DRUG INTERACTION [None]
  - PULMONARY HAEMORRHAGE [None]
